FAERS Safety Report 8263611-1 (Version None)
Quarter: 2012Q2

REPORT INFORMATION
  Report Type: 
  Country: None (occurrence: None)
  Receive Date: 20120405
  Receipt Date: 20120322
  Transmission Date: 20120825
  Serious: Yes (Hospitalization)
  Sender: FDA-Public Use
  Company Number: FR-BAYER-2012-033045

PATIENT
  Age: 42 Year
  Sex: Female

DRUGS (2)
  1. MELADININE [METHOXSALEN] [Suspect]
     Indication: PRODUCT USED FOR UNKNOWN INDICATION
     Dosage: 4 TABLETS EVERY 2 HOURS BEFORE PUVA THERAPY, SHE
     Route: 048
     Dates: end: 20111219
  2. NAPROXEN SODIUM [Suspect]
     Indication: PRODUCT USED FOR UNKNOWN INDICATION
     Dosage: 1 DF, QD
     Route: 048
     Dates: end: 20111221

REACTIONS (1)
  - CYTOLYTIC HEPATITIS [None]
